FAERS Safety Report 6234737-9 (Version None)
Quarter: 2009Q2

REPORT INFORMATION
  Report Type: 
  Country: None (occurrence: None)
  Receive Date: 20090615
  Receipt Date: 20090218
  Transmission Date: 20091009
  Serious: No
  Sender: FDA-Public Use
  Company Number: DSA_33246_2009

PATIENT
  Sex: Female
  Weight: 91.6266 kg

DRUGS (9)
  1. XENAZINE [Suspect]
     Indication: HUNTINGTON'S CHOREA
     Dosage: 12.5 MG BID, 25 MG, 37.5 MG
     Dates: start: 20090101, end: 20090101
  2. XENAZINE [Suspect]
     Indication: HUNTINGTON'S CHOREA
     Dosage: 12.5 MG BID, 25 MG, 37.5 MG
     Dates: start: 20090129, end: 20090101
  3. XENAZINE [Suspect]
     Indication: HUNTINGTON'S CHOREA
     Dosage: 12.5 MG BID, 25 MG, 37.5 MG
     Dates: start: 20090101, end: 20090219
  4. PROZAC [Concomitant]
  5. LORAZEPAM [Concomitant]
  6. KLONOPIN [Concomitant]
  7. ESTRADIOL [Concomitant]
  8. PRAVASTATIN [Concomitant]
  9. XANAX [Concomitant]

REACTIONS (6)
  - ANXIETY [None]
  - DRUG INEFFECTIVE [None]
  - FALL [None]
  - GAIT DISTURBANCE [None]
  - INSOMNIA [None]
  - PRODUCT QUALITY ISSUE [None]
